FAERS Safety Report 11569852 (Version 1)
Quarter: 2015Q3

REPORT INFORMATION
  Report Type: Spontaneous
  Country: GB (occurrence: GB)
  Receive Date: 20150929
  Receipt Date: 20150929
  Transmission Date: 20151125
  Serious: Yes (Death)
  Sender: FDA-Public Use
  Company Number: GB-PFIZER INC-2015316736

PATIENT
  Age: 67 Year
  Sex: Female

DRUGS (1)
  1. DALTEPARIN SODIUM [Suspect]
     Active Substance: DALTEPARIN SODIUM
     Dosage: 5000 IU, UNK

REACTIONS (3)
  - Contraindicated drug administered [Unknown]
  - Cardiac arrest [Fatal]
  - Abdominal pain [Not Recovered/Not Resolved]
